FAERS Safety Report 4315531-2 (Version None)
Quarter: 2004Q1

REPORT INFORMATION
  Report Type: 
  Country: None (occurrence: None)
  Receive Date: 20040311
  Receipt Date: 20040304
  Transmission Date: 20041129
  Serious: Yes (Hospitalization)
  Sender: FDA-Public Use
  Company Number: PHNU2004DE01102

PATIENT
  Sex: Female

DRUGS (5)
  1. TRILEPTAL [Suspect]
     Indication: EPILEPSY
     Dosage: 1800 MG/D
     Route: 048
     Dates: end: 20040101
  2. TRILEPTAL [Suspect]
     Dosage: 1500 MG/D
     Route: 048
  3. LAMOTRIGINE [Concomitant]
  4. KEPPRA [Concomitant]
     Dosage: DOSAGE REDUCED
  5. PRIMIDONE [Concomitant]

REACTIONS (5)
  - CONSTIPATION [None]
  - FATIGUE [None]
  - STREPTOCOCCAL INFECTION [None]
  - SUBILEUS [None]
  - URINARY TRACT INFECTION [None]
